FAERS Safety Report 5133461-3 (Version None)
Quarter: 2006Q4

REPORT INFORMATION
  Report Type: 
  Country: None (occurrence: None)
  Receive Date: 20061024
  Receipt Date: 20061009
  Transmission Date: 20070319
  Serious: Yes (Other)
  Sender: FDA-Public Use
  Company Number: US-BRISTOL-MYERS SQUIBB COMPANY-13548649

PATIENT
  Age: 59 Year
  Sex: Male

DRUGS (1)
  1. CYCLOPHOSPHAMIDE [Suspect]
     Indication: MYELODYSPLASTIC SYNDROME

REACTIONS (3)
  - DRUG TOXICITY [None]
  - GRAFT VERSUS HOST DISEASE [None]
  - MALIGNANT MELANOMA [None]
